FAERS Safety Report 4517935-1 (Version None)
Quarter: 2004Q4

REPORT INFORMATION
  Report Type: 
  Country: None (occurrence: None)
  Receive Date: 20041203
  Receipt Date: 20041005
  Transmission Date: 20050328
  Serious: Yes (Hospitalization)
  Sender: FDA-Public Use
  Company Number: US-MERCK-0410USA00709

PATIENT
  Age: 76 Year
  Sex: Male

DRUGS (9)
  1. VIOXX [Suspect]
     Indication: ARTHRITIS
     Route: 048
     Dates: start: 19990101, end: 20040101
  2. VIOXX [Suspect]
     Route: 048
     Dates: start: 20040609, end: 20040930
  3. PREVACID [Concomitant]
     Route: 065
  4. ASPIRIN [Concomitant]
     Route: 065
  5. POLYETHYLENE GLYCOL 3350 [Concomitant]
     Route: 065
  6. CALCIUM (UNSPECIFIED) [Concomitant]
     Route: 065
  7. VITAMIN E [Concomitant]
     Route: 065
  8. ASCORBIC ACID [Concomitant]
     Route: 065
  9. VITAMINS (UNSPECIFIED) [Concomitant]
     Route: 065

REACTIONS (16)
  - AORTIC VALVE SCLEROSIS [None]
  - BACK PAIN [None]
  - CHEST DISCOMFORT [None]
  - CORONARY ARTERY DISEASE [None]
  - CORONARY ARTERY STENOSIS [None]
  - HAEMATOMA [None]
  - HYPERLIPIDAEMIA [None]
  - HYPERTENSION [None]
  - LUNG INFILTRATION [None]
  - MITRAL VALVE INCOMPETENCE [None]
  - MITRAL VALVE PROLAPSE [None]
  - MYOCARDIAL ISCHAEMIA [None]
  - PAIN IN EXTREMITY [None]
  - RECTAL HAEMORRHAGE [None]
  - VASCULAR CALCIFICATION [None]
  - VENTRICULAR HYPERTROPHY [None]
